FAERS Safety Report 4409474-3 (Version None)
Quarter: 2004Q3

REPORT INFORMATION
  Report Type: 
  Country: None (occurrence: None)
  Receive Date: 20040723
  Receipt Date: 20040716
  Transmission Date: 20050211
  Serious: Yes (Other)
  Sender: FDA-Public Use
  Company Number: US-JNJFOC-20040705196

PATIENT
  Age: 27 Year
  Sex: Female
  Weight: 88.4514 kg

DRUGS (1)
  1. ORTHO EVRA [Suspect]
     Indication: CONTRACEPTION
     Dosage: 1 DOSE (S), 3 IN 4 WEEK, TRANSDERMAL
     Route: 062

REACTIONS (7)
  - CERVIX CARCINOMA [None]
  - DEPRESSION [None]
  - FATIGUE [None]
  - METRORRHAGIA [None]
  - MOOD SWINGS [None]
  - VIRAL INFECTION [None]
  - WEIGHT INCREASED [None]
